FAERS Safety Report 6371436-7 (Version None)
Quarter: 2009Q3

REPORT INFORMATION
  Report Type: 
  Country: None (occurrence: None)
  Receive Date: 20090923
  Receipt Date: 20090410
  Transmission Date: 20100115
  Serious: Yes (Other)
  Sender: FDA-Public Use
  Company Number: US-ASTRAZENECA-2007UW12000

PATIENT
  Age: 642 Month
  Sex: Male
  Weight: 64.4 kg

DRUGS (3)
  1. SEROQUEL [Suspect]
     Indication: SLEEP DISORDER
     Route: 048
     Dates: start: 20030228
  2. SEROQUEL [Suspect]
     Dosage: 200 MG TO 300 MG
     Route: 048
     Dates: start: 20050824
  3. SEROQUEL [Suspect]
     Dosage: 200 MG TO 300 MG
     Route: 048
     Dates: start: 20071004, end: 20080903

REACTIONS (1)
  - PANCREATITIS [None]
